FAERS Safety Report 4840145-5 (Version None)
Quarter: 2005Q4

REPORT INFORMATION
  Report Type: 
  Country: None (occurrence: None)
  Receive Date: 20051125
  Receipt Date: 20051110
  Transmission Date: 20060501
  Serious: Yes (Other)
  Sender: FDA-Public Use
  Company Number: 2005RL000174

PATIENT
  Age: 78 Year
  Sex: Female
  Weight: 58.0604 kg

DRUGS (2)
  1. ANTARA (MICRONIZED) [Suspect]
     Indication: HYPERTRIGLYCERIDAEMIA
     Dosage: 130 MG;QD;PO
     Route: 048
     Dates: start: 20050502, end: 20050926
  2. DIOVAN ^CIBA-GEICY^ [Concomitant]

REACTIONS (4)
  - ANION GAP DECREASED [None]
  - BLOOD CHLORIDE INCREASED [None]
  - RENAL FAILURE ACUTE [None]
  - URINARY NITROGEN INCREASED [None]
